FAERS Safety Report 8550084-4 (Version None)
Quarter: 2012Q3

REPORT INFORMATION
  Report Type: 
  Country: None (occurrence: None)
  Receive Date: 20120719
  Receipt Date: 20120709
  Transmission Date: 20120928
  Serious: Yes (Disabling, Other)
  Sender: FDA-Public Use
  Company Number: AUR-APL-2012-02975

PATIENT
  Sex: Male
  Weight: 94.8018 kg

DRUGS (1)
  1. CIPROFLOXACIN (CIPROFLOXACIN) [Suspect]
     Indication: URINARY TRACT INFECTION
     Dosage: 1000 MG (500 MG, 2 IN 1 D)
     Dates: start: 20120621, end: 20120701

REACTIONS (3)
  - PAIN IN EXTREMITY [None]
  - IMPAIRED WORK ABILITY [None]
  - ABDOMINAL PAIN UPPER [None]
